FAERS Safety Report 10340261 (Version 1)
Quarter: 2014Q3

REPORT INFORMATION
  Report Type: Spontaneous
  Country: US (occurrence: None)
  Receive Date: 20140722
  Receipt Date: 20140722
  Transmission Date: 20150326
  Serious: Yes (Other)
  Sender: FDA-Public Use
  Company Number: 1255750

PATIENT
  Age: 55 Year
  Sex: Female
  Weight: 87.09 kg

DRUGS (1)
  1. NUVAIL NAIL SOLUTION POLY-UREAURETHANE, 16% [Suspect]
     Active Substance: DEVICE

REACTIONS (1)
  - Adverse drug reaction [None]

NARRATIVE: CASE EVENT DATE: 20130930
